FAERS Safety Report 15269710 (Version 2)
Quarter: 2018Q3

REPORT INFORMATION
  Report Type: Spontaneous
  Country: CZ (occurrence: CZ)
  Receive Date: 20180813
  Receipt Date: 20180827
  Transmission Date: 20181010
  Serious: Yes (Other)
  Sender: FDA-Public Use
  Company Number: PHHY2017CZ178899

PATIENT
  Age: 39 Year
  Sex: Male

DRUGS (11)
  1. THALIDOMIDE [Suspect]
     Active Substance: THALIDOMIDE
     Indication: PRODUCT USED FOR UNKNOWN INDICATION
     Dosage: 100 MG, QD
     Route: 065
  2. ZOMETA [Suspect]
     Active Substance: ZOLEDRONIC ACID
     Indication: OSTEOLYSIS
     Dosage: 4 MG, AT 28?WEEK INTERVALS
     Route: 042
     Dates: start: 20050623, end: 20090101
  3. INTRON A [Suspect]
     Active Substance: INTERFERON ALFA-2B
     Dosage: 3 MIU, TIW
     Route: 065
     Dates: start: 20060401
  4. AFLIBERCEPT [Suspect]
     Active Substance: AFLIBERCEPT
     Dosage: 2 MG/KG,QOW
     Route: 065
     Dates: start: 2017
  5. ZOMETA [Suspect]
     Active Substance: ZOLEDRONIC ACID
     Dosage: 4 MG, Q2M
     Route: 042
     Dates: start: 20090101
  6. BEVACIZUMAB. [Concomitant]
     Active Substance: BEVACIZUMAB
     Indication: CYSTIC ANGIOMATOSIS
     Dosage: 7.5 MG/KG, Q3W
     Route: 065
     Dates: start: 201301, end: 201302
  7. TAXOL [Suspect]
     Active Substance: PACLITAXEL
     Indication: ANGIOPATHY
     Route: 065
  8. INTRON A [Suspect]
     Active Substance: INTERFERON ALFA-2B
     Indication: HAEMANGIOMA
     Dosage: 6 MIU, TIW
     Route: 065
     Dates: start: 20050623, end: 20060401
  9. AFLIBERCEPT [Suspect]
     Active Substance: AFLIBERCEPT
     Indication: HAEMANGIOMA
     Dosage: 4 MG/KG,QOW
     Route: 065
     Dates: start: 2015, end: 2017
  10. PROPRANOLOL [Suspect]
     Active Substance: PROPRANOLOL HYDROCHLORIDE
     Indication: PRODUCT USED FOR UNKNOWN INDICATION
     Route: 065
  11. BEVACIZUMAB. [Concomitant]
     Active Substance: BEVACIZUMAB
     Indication: HAEMANGIOMA

REACTIONS (13)
  - Neuropathy peripheral [Unknown]
  - Fatigue [Unknown]
  - Hypotension [Unknown]
  - Osteonecrosis [Unknown]
  - Decreased appetite [Unknown]
  - Depression [Unknown]
  - Hypertension [Recovered/Resolved]
  - Proteinuria [Recovering/Resolving]
  - Drug intolerance [Unknown]
  - Peripheral swelling [Unknown]
  - Pleural effusion [Unknown]
  - Product use in unapproved indication [Unknown]
  - Off label use [Unknown]

NARRATIVE: CASE EVENT DATE: 201701
